FAERS Safety Report 15753411 (Version 2)
Quarter: 2018Q4

REPORT INFORMATION
  Report Type: Spontaneous
  Country: US (occurrence: US)
  Receive Date: 20181222
  Receipt Date: 20181222
  Transmission Date: 20190205
  Serious: No
  Sender: FDA-Public Use
  Company Number: US-MALLINCKRODT-T201704840

PATIENT
  Sex: Male

DRUGS (2)
  1. FENTANYL TRANSDERMAL SYSTEM [Suspect]
     Active Substance: FENTANYL
     Indication: HEADACHE
     Dosage: 25 MCG/HR, EVERY 72 HOURS
     Route: 062
     Dates: start: 201710
  2. FENTANYL TRANSDERMAL SYSTEM [Suspect]
     Active Substance: FENTANYL
     Indication: NECK PAIN
     Dosage: 100 MCG/H, EVERY 2 DAYS
     Route: 062
     Dates: start: 2017

REACTIONS (4)
  - Drug effect incomplete [Unknown]
  - Product adhesion issue [Unknown]
  - Headache [Unknown]
  - Feeling abnormal [Unknown]
